FAERS Safety Report 12265293 (Version 2)
Quarter: 2016Q2

REPORT INFORMATION
  Report Type: Spontaneous
  Country: IT (occurrence: IT)
  Receive Date: 20160413
  Receipt Date: 20160428
  Transmission Date: 20160815
  Serious: Yes (Other)
  Sender: FDA-Public Use
  Company Number: IT-ABBVIE-16P-083-1604556-00

PATIENT
  Age: 6 Year
  Sex: Female

DRUGS (2)
  1. CEFIXORAL [Concomitant]
     Active Substance: CEFIXIME
     Indication: ASTHMA
     Dosage: FORM STRENGTH: 100 MG/5 ML
     Route: 048
  2. MACLADIN [Suspect]
     Active Substance: CLARITHROMYCIN
     Indication: ASTHMA
     Dosage: FORM STRENGTH: 125 MG/5 ML, DAILY
     Route: 048

REACTIONS (3)
  - Pruritus [Unknown]
  - Rash [Unknown]
  - Generalised oedema [Unknown]

NARRATIVE: CASE EVENT DATE: 20150201
